FAERS Safety Report 4874986-5 (Version None)
Quarter: 2006Q1

REPORT INFORMATION
  Report Type: 
  Country: None (occurrence: None)
  Receive Date: 20060105
  Receipt Date: 20051228
  Transmission Date: 20060701
  Serious: Yes (Death, Life-Threatening, Other)
  Sender: FDA-Public Use
  Company Number: MC200501227

PATIENT
  Age: 63 Year
  Sex: Female

DRUGS (3)
  1. ANGIOMAX [Suspect]
     Indication: CORONARY ANGIOPLASTY
     Dosage: SEE IMAGE
     Route: 040
     Dates: start: 20051206, end: 20051206
  2. ANGIOMAX [Suspect]
     Indication: CORONARY ANGIOPLASTY
     Dosage: SEE IMAGE
     Route: 040
     Dates: start: 20051206, end: 20051206
  3. PLAVIX [Suspect]
     Dosage: 300 MG, POST PROCEDURE
     Dates: start: 20051226

REACTIONS (3)
  - CARDIAC ARREST [None]
  - CORONARY REVASCULARISATION [None]
  - THROMBOSIS IN DEVICE [None]
